FAERS Safety Report 11195458 (Version 1)
Quarter: 2015Q2

REPORT INFORMATION
  Report Type: Spontaneous
  Country: SE (occurrence: SE)
  Receive Date: 20150617
  Receipt Date: 20150617
  Transmission Date: 20150821
  Serious: Yes (Hospitalization, Other)
  Sender: FDA-Public Use
  Company Number: SE-ACTAVIS-2015-11543

PATIENT
  Age: 65 Year
  Sex: Female

DRUGS (3)
  1. ANASTROZOLE (UNKNOWN) [Suspect]
     Active Substance: ANASTROZOLE
     Indication: BREAST CANCER
     Dosage: 1 MG, DAILY
     Route: 065
  2. DIPENTUM [Concomitant]
     Active Substance: OLSALAZINE SODIUM
     Indication: COLITIS ULCERATIVE
     Dosage: 250 MG, BID
     Route: 065
  3. ARIMIDEX [Suspect]
     Active Substance: ANASTROZOLE
     Indication: BREAST CANCER
     Dosage: 1 MG, DAILY
     Route: 065
     Dates: start: 200510, end: 200907

REACTIONS (2)
  - Hypercalcaemia [Recovered/Resolved]
  - Blood parathyroid hormone increased [Recovered/Resolved]
